FAERS Safety Report 15650131 (Version 2)
Quarter: 2018Q4

REPORT INFORMATION
  Report Type: Report from Study
  Country: AU (occurrence: AU)
  Receive Date: 20181123
  Receipt Date: 20181211
  Transmission Date: 20190205
  Serious: Yes (Hospitalization)
  Sender: FDA-Public Use
  Company Number: AU-ROCHE-2216818

PATIENT
  Age: 71 Year
  Sex: Female

DRUGS (17)
  1. PARACETAMOL [Concomitant]
     Active Substance: ACETAMINOPHEN
     Route: 065
     Dates: start: 2010
  2. CALTRATE [Concomitant]
     Active Substance: CALCIUM CARBONATE
     Route: 065
     Dates: start: 2005
  3. VASOCARDOL [Concomitant]
     Route: 065
     Dates: start: 2011
  4. SIMVASTATIN. [Concomitant]
     Active Substance: SIMVASTATIN
     Route: 065
     Dates: start: 20110615
  5. LASIX [Concomitant]
     Active Substance: FUROSEMIDE
     Route: 065
     Dates: start: 20120119
  6. MAGMIN [Concomitant]
     Active Substance: MAGNESIUM ASPARTATE
     Route: 065
     Dates: start: 2012
  7. AMITRIPTYLINE [Concomitant]
     Active Substance: AMITRIPTYLINE
     Route: 065
     Dates: start: 2003
  8. SOMAC [Concomitant]
     Active Substance: PANTOPRAZOLE SODIUM
     Route: 065
     Dates: start: 2011
  9. IBRUTINIB [Suspect]
     Active Substance: IBRUTINIB
     Indication: CHRONIC LYMPHOCYTIC LEUKAEMIA
     Dosage: DATE OF MOST RECENT DOSE OF IBRUTINIB PRIOR TO SAE WAS 04/NOV/2018.
     Route: 065
     Dates: start: 20170905
  10. IRBESARTAN. [Concomitant]
     Active Substance: IRBESARTAN
     Route: 065
     Dates: start: 201203
  11. NOVORAPID [Concomitant]
     Active Substance: INSULIN ASPART
     Dosage: 16 UNITS
     Route: 065
     Dates: start: 20150531
  12. SALINE [Concomitant]
     Active Substance: SODIUM CHLORIDE
     Route: 042
  13. OBINUTUZUMAB. [Suspect]
     Active Substance: OBINUTUZUMAB
     Indication: CHRONIC LYMPHOCYTIC LEUKAEMIA
     Dosage: THE LAST DOSE PRIOR TO THE SMALL BOWEL OBSTRUCTION WAS ADMINISTERED ON 23/JUN/2015
     Route: 042
     Dates: start: 20150526, end: 20151110
  14. CHLORAMBUCIL [Suspect]
     Active Substance: CHLORAMBUCIL
     Indication: CHRONIC LYMPHOCYTIC LEUKAEMIA
     Dosage: THE LAST DOSE PRIOR TO THE SMALL BOWEL OBSTRUCTION WAS ADMINISTERED ON 23/JUN/2015?ALSO RECEIVED ON
     Route: 048
     Dates: start: 20150526, end: 20180929
  15. JANUMET [Concomitant]
     Active Substance: METFORMIN HYDROCHLORIDE\SITAGLIPTIN PHOSPHATE
     Dosage: 50/500 MG
     Route: 065
     Dates: start: 20150127
  16. LEVEMIR [Concomitant]
     Active Substance: INSULIN DETEMIR
     Dosage: 16 UNITS
     Route: 065
     Dates: start: 20150527
  17. INSULIN [Concomitant]
     Active Substance: INSULIN NOS

REACTIONS (2)
  - Gastrointestinal disorder [Recovered/Resolved]
  - Small intestinal obstruction [Recovered/Resolved]

NARRATIVE: CASE EVENT DATE: 20150705
